FAERS Safety Report 14181417 (Version 1)
Quarter: 2017Q4

REPORT INFORMATION
  Report Type: Spontaneous
  Country: US (occurrence: US)
  Receive Date: 20171110
  Receipt Date: 20171110
  Transmission Date: 20180321
  Serious: Yes (Disabling)
  Sender: FDA-Public Use
  Company Number: None

PATIENT
  Age: 28 Year
  Sex: Female
  Weight: 38.7 kg

DRUGS (13)
  1. MAGNESIUM [Concomitant]
     Active Substance: MAGNESIUM
  2. DOXEPIN [Concomitant]
     Active Substance: DOXEPIN
  3. VITAMIN D [Concomitant]
     Active Substance: CHOLECALCIFEROL
  4. LDN [Concomitant]
     Active Substance: NALTREXONE
  5. ATARAX [Concomitant]
     Active Substance: HYDROXYZINE HYDROCHLORIDE
  6. GLUTATHIONE [Concomitant]
     Active Substance: GLUTATHIONE
  7. HOMEOPATHIC REMEDIES [Concomitant]
  8. ZINC. [Concomitant]
     Active Substance: ZINC
  9. KRILL OIL [Concomitant]
     Active Substance: DIETARY SUPPLEMENT
  10. 5HTP [Concomitant]
  11. FLUOCINONIDE-E [Suspect]
     Active Substance: FLUOCINONIDE
     Indication: ECZEMA
     Route: 061
     Dates: start: 20150101, end: 20170103
  12. PREDNISONE. [Suspect]
     Active Substance: PREDNISONE
     Indication: ECZEMA
     Dosage: ?          QUANTITY:1 TABLET(S);?
     Route: 048
     Dates: start: 20130101, end: 20170103
  13. VITAMIN C [Concomitant]
     Active Substance: ASCORBIC ACID

REACTIONS (7)
  - Eczema [None]
  - Fatigue [None]
  - Weight decreased [None]
  - Neuralgia [None]
  - Withdrawal syndrome [None]
  - Food allergy [None]
  - Infection [None]

NARRATIVE: CASE EVENT DATE: 20170103
